FAERS Safety Report 12573936 (Version 2)
Quarter: 2016Q3

REPORT INFORMATION
  Report Type: Report from Study
  Country: US (occurrence: US)
  Receive Date: 20160720
  Receipt Date: 20160908
  Transmission Date: 20161109
  Serious: Yes (Death)
  Sender: FDA-Public Use
  Company Number: US-BAYER-2016-138039

PATIENT
  Age: 39 Year
  Sex: Female

DRUGS (1)
  1. ADEMPAS [Suspect]
     Active Substance: RIOCIGUAT
     Indication: PULMONARY ARTERIAL HYPERTENSION
     Dosage: 0.5 MG, TID
     Route: 048
     Dates: start: 20160614, end: 20160627

REACTIONS (2)
  - Renal failure [Fatal]
  - Adverse event [Fatal]

NARRATIVE: CASE EVENT DATE: 20160627
